FAERS Safety Report 5131436-1 (Version None)
Quarter: 2006Q4

REPORT INFORMATION
  Report Type: 
  Country: None (occurrence: None)
  Receive Date: 20061020
  Receipt Date: 20051201
  Transmission Date: 20070319
  Serious: Yes (Death, Hospitalization)
  Sender: FDA-Public Use
  Company Number: JP-BRISTOL-MYERS SQUIBB COMPANY-13203153

PATIENT
  Age: 68 Year
  Sex: Female

DRUGS (10)
  1. HYDREA [Suspect]
     Indication: ESSENTIAL THROMBOCYTHAEMIA
     Route: 048
     Dates: start: 19950101, end: 20051001
  2. ADRIAMYCIN PFS [Concomitant]
  3. BLEOMYCIN [Concomitant]
  4. VINCREX SULFATE [Concomitant]
  5. DACARBAZINE [Concomitant]
  6. ADALAT [Concomitant]
     Route: 048
  7. GASTER D [Concomitant]
     Route: 048
  8. GASLON N [Concomitant]
     Route: 048
  9. THEO-DUR [Concomitant]
     Route: 048
  10. MEPTIN [Concomitant]
     Route: 048

REACTIONS (6)
  - HODGKIN'S DISEASE [None]
  - HYPOGLYCAEMIA [None]
  - LIVER DISORDER [None]
  - METABOLIC ACIDOSIS [None]
  - PERIPHERAL T-CELL LYMPHOMA UNSPECIFIED [None]
  - TREATMENT RELATED SECONDARY MALIGNANCY [None]
